FAERS Safety Report 7654538-4 (Version None)
Quarter: 2011Q3

REPORT INFORMATION
  Report Type: 
  Country: None (occurrence: None)
  Receive Date: 20110803
  Receipt Date: 20100421
  Transmission Date: 20111222
  Serious: Yes (Death, Life-Threatening, Hospitalization, Other)
  Sender: FDA-Public Use
  Company Number: GB-MERCK-0903GBR00082

PATIENT
  Age: 49 Year
  Sex: Female
  Weight: 112 kg

DRUGS (11)
  1. BENDROFLUMETHIAZIDE [Concomitant]
     Route: 065
  2. ISENTRESS [Suspect]
     Indication: HIV INFECTION
     Route: 048
     Dates: start: 20090129, end: 20090301
  3. AMLODIPINE [Concomitant]
     Route: 065
  4. ATAZANAVIR [Concomitant]
     Route: 065
     Dates: start: 20050101, end: 20090129
  5. DARUNAVIR [Suspect]
     Indication: HIV INFECTION
     Route: 048
     Dates: start: 20090129, end: 20090216
  6. ETRAVIRINE [Suspect]
     Indication: HIV INFECTION
     Route: 048
     Dates: start: 20090129, end: 20090301
  7. LOPINAVIR AND RITONAVIR [Suspect]
     Indication: HIV INFECTION
     Route: 048
     Dates: start: 20090216, end: 20090301
  8. DICLOFENAC [Concomitant]
     Route: 065
  9. RITONAVIR [Concomitant]
     Indication: HIV INFECTION
     Route: 065
     Dates: start: 20090129, end: 20090216
  10. TENOFOVIR [Concomitant]
     Route: 065
     Dates: start: 20050101, end: 20090129
  11. ABACAVIR SULFATE [Concomitant]
     Route: 065
     Dates: start: 20050101, end: 20090129

REACTIONS (18)
  - TOXIC EPIDERMAL NECROLYSIS [None]
  - NEUROPATHY PERIPHERAL [None]
  - HEADACHE [None]
  - BLISTER [None]
  - ORAL DISORDER [None]
  - OEDEMA PERIPHERAL [None]
  - TEARFULNESS [None]
  - LIVER FUNCTION TEST ABNORMAL [None]
  - ACUTE HAEMORRHAGIC CONJUNCTIVITIS [None]
  - ARTHRALGIA [None]
  - STEVENS-JOHNSON SYNDROME [None]
  - PARAESTHESIA [None]
  - TACHYCARDIA [None]
  - DECREASED APPETITE [None]
  - ALANINE AMINOTRANSFERASE INCREASED [None]
  - EYE DISORDER [None]
  - VISUAL IMPAIRMENT [None]
  - ANAEMIA [None]
